FAERS Safety Report 19056313 (Version 1)
Quarter: 2021Q1

REPORT INFORMATION
  Report Type: Spontaneous
  Country: US (occurrence: US)
  Receive Date: 20210324
  Receipt Date: 20210324
  Transmission Date: 20210420
  Serious: Yes (Death)
  Sender: FDA-Public Use
  Company Number: None

PATIENT
  Age: 58 Day
  Sex: Female
  Weight: 68 kg

DRUGS (2)
  1. NIVOLUMAB  240MG [Suspect]
     Active Substance: NIVOLUMAB
     Indication: GLIOBLASTOMA
     Route: 042
     Dates: start: 20191219, end: 20201118
  2. BEVACIZUMAB 3 MG/KG [Suspect]
     Active Substance: BEVACIZUMAB
     Indication: GLIOBLASTOMA
     Route: 042
     Dates: start: 20191219, end: 20201118

REACTIONS (1)
  - Death [None]

NARRATIVE: CASE EVENT DATE: 20210202
